FAERS Safety Report 9547993 (Version 1)
Quarter: 2013Q3

REPORT INFORMATION
  Report Type: Spontaneous
  Country: US (occurrence: None)
  Receive Date: 20130730
  Receipt Date: 20130730
  Transmission Date: 20140515
  Serious: Yes (Other)
  Sender: FDA-Public Use
  Company Number: LJMP-98TRJM

PATIENT
  Sex: Female

DRUGS (2)
  1. 3M AVAGARD INSTANT HAND ANTISEPTIC WITH MOISTURIZERS [Suspect]
     Indication: ANTIBIOTIC THERAPY
     Dosage: 6ML, AS NEEDED, 060
     Dates: start: 20130208
  2. UNSPECIFIED INGREDIENTS [Suspect]

REACTIONS (6)
  - Erythema [None]
  - Pruritus [None]
  - Rash [None]
  - Burning sensation [None]
  - Blister [None]
  - Dyspnoea [None]
